FAERS Safety Report 18098155 (Version 1)
Quarter: 2020Q3

REPORT INFORMATION
  Report Type: Spontaneous
  Country: US (occurrence: US)
  Receive Date: 20200731
  Receipt Date: 20200731
  Transmission Date: 20201103
  Serious: Yes (Hospitalization, Other)
  Sender: FDA-Public Use
  Company Number: US-MYLANLABS-2020M1067694

PATIENT
  Sex: Female
  Weight: 134 kg

DRUGS (6)
  1. LITHIUM. [Suspect]
     Active Substance: LITHIUM
     Indication: ANXIETY
     Dosage: UNK, (ABOUT 7 YEARS AGO)
     Route: 065
  2. LITHIUM. [Suspect]
     Active Substance: LITHIUM
     Indication: DEPRESSION
     Dosage: UNK, (ABOUT 2 YEARS)
  3. INVEGA SUSTENNA [Concomitant]
     Active Substance: PALIPERIDONE PALMITATE
     Dosage: UNK
  4. RISPERDAL [Concomitant]
     Active Substance: RISPERIDONE
     Dosage: UNK
  5. HALDOL [Concomitant]
     Active Substance: HALOPERIDOL
     Dosage: UNK
  6. BENZATROPINE [Concomitant]
     Active Substance: BENZTROPINE
     Dosage: UNK

REACTIONS (9)
  - Mental disorder [Recovered/Resolved]
  - Anxiety [Recovered/Resolved]
  - Bipolar disorder [Recovered/Resolved]
  - Mental status changes [Recovered/Resolved]
  - Schizophrenia [Recovered/Resolved]
  - Tremor [Recovered/Resolved]
  - Confusional state [Recovered/Resolved]
  - Paranoia [Recovered/Resolved]
  - Delusion [Recovered/Resolved]
